FAERS Safety Report 7759492-2 (Version None)
Quarter: 2011Q3

REPORT INFORMATION
  Report Type: 
  Country: None (occurrence: None)
  Receive Date: 20110919
  Receipt Date: 20110919
  Transmission Date: 20111222
  Serious: Yes (Hospitalization, Disabling)
  Sender: FDA-Public Use
  Company Number: None

PATIENT
  Age: 65 Year
  Sex: Female
  Weight: 81.7 kg

DRUGS (26)
  1. TALC [Suspect]
     Indication: PNEUMOTHORAX
     Dates: start: 20110830, end: 20110830
  2. LIDODERM [Concomitant]
  3. SODIUM BICARBONATE [Concomitant]
  4. ATENOLOL [Concomitant]
  5. CEFUROXIME [Concomitant]
  6. LOVENOX [Concomitant]
  7. GUAIFENESIN [Concomitant]
  8. VENTOLIN HFA [Concomitant]
  9. DOCUSATE-SENNA [Concomitant]
  10. LAMOTRIGINE [Concomitant]
  11. ZETIA [Concomitant]
  12. HEPARIN [Concomitant]
  13. ATIVAN [Concomitant]
  14. FENOFIBRATE [Concomitant]
  15. ATIVAN [Concomitant]
  16. PROTONIX [Concomitant]
  17. TRAZODONE HCL [Concomitant]
  18. FAMOTIDINE [Concomitant]
  19. GUAIFENESIN [Concomitant]
  20. MILK OF MAGNESIA TAB [Concomitant]
  21. METOCLOPRAMIDE [Concomitant]
  22. VERSED [Concomitant]
  23. MULTIPLE VITAMIN [Concomitant]
  24. PRAMIPEXOLE DIHYDROCHLORIDE [Concomitant]
  25. SIMVASTATIN [Concomitant]
  26. SUCRALFATE [Concomitant]

REACTIONS (4)
  - POST PROCEDURAL COMPLICATION [None]
  - HYPERSENSITIVITY [None]
  - SYSTEMIC INFLAMMATORY RESPONSE SYNDROME [None]
  - ACUTE RESPIRATORY DISTRESS SYNDROME [None]
